FAERS Safety Report 25588701 (Version 1)
Quarter: 2025Q3

REPORT INFORMATION
  Report Type: Spontaneous
  Country: US (occurrence: US)
  Receive Date: 20250722
  Receipt Date: 20250722
  Transmission Date: 20251021
  Serious: Yes (Other)
  Sender: BRISTOL-MYERS SQUIBB COMPANY
  Company Number: US-BRISTOL-MYERS SQUIBB COMPANY-2025-101454

PATIENT
  Age: 65 Year
  Sex: Male

DRUGS (1)
  1. THALIDOMIDE [Suspect]
     Active Substance: THALIDOMIDE
     Indication: Product used for unknown indication

REACTIONS (4)
  - Haemorrhage [Unknown]
  - Therapy interrupted [Unknown]
  - Haemoglobin decreased [Unknown]
  - Insurance issue [Unknown]
